FAERS Safety Report 6545576-3 (Version None)
Quarter: 2010Q1

REPORT INFORMATION
  Report Type: 
  Country: None (occurrence: None)
  Receive Date: 20100121
  Receipt Date: 20100114
  Transmission Date: 20100710
  Serious: Yes (Other)
  Sender: FDA-Public Use
  Company Number: US-PFIZER INC-2010003885

PATIENT
  Sex: Female
  Weight: 72.574 kg

DRUGS (9)
  1. CHANTIX [Suspect]
     Indication: SMOKING CESSATION THERAPY
     Dosage: 1 MG, 2X/DAY
     Dates: start: 20090901, end: 20091101
  2. GLIPIZIDE [Suspect]
     Indication: DIABETES MELLITUS
     Dosage: 10 MG, 2X/DAY
  3. VERAPAMIL HYDROCHLORIDE [Concomitant]
  4. TERAZOSIN HYDROCHLORIDE [Concomitant]
  5. LIPITOR [Concomitant]
  6. MICARDIS HCT [Concomitant]
  7. SITAGLIPTIN [Concomitant]
     Indication: DIABETES MELLITUS
  8. PLAVIX [Concomitant]
  9. ACETYLSALICYLIC ACID [Concomitant]

REACTIONS (1)
  - BLOOD GLUCOSE INCREASED [None]
